FAERS Safety Report 22181598 (Version 2)
Quarter: 2023Q2

REPORT INFORMATION
  Report Type: Other
  Country: US (occurrence: US)
  Receive Date: 20230406
  Receipt Date: 20230518
  Transmission Date: 20230721
  Serious: No
  Sender: FDA-Public Use
  Company Number: US-Covis Pharma GmbH-2023COV00640

PATIENT
  Age: 35 Year
  Sex: Female

DRUGS (1)
  1. MAKENA [Suspect]
     Active Substance: HYDROXYPROGESTERONE CAPROATE
     Indication: Product used for unknown indication
     Route: 058
     Dates: start: 20221031, end: 20230214

REACTIONS (3)
  - Abdominal discomfort [Unknown]
  - Vision blurred [Unknown]
  - Amnesia [Unknown]

NARRATIVE: CASE EVENT DATE: 20230101
